FAERS Safety Report 8257640-1 (Version None)
Quarter: 2012Q2

REPORT INFORMATION
  Report Type: 
  Country: None (occurrence: None)
  Receive Date: 20120403
  Receipt Date: 20120327
  Transmission Date: 20120825
  Serious: Yes (Hospitalization)
  Sender: FDA-Public Use
  Company Number: JP-MERCK-1203USA01264

PATIENT
  Age: 76 Year
  Sex: Male
  Weight: 85 kg

DRUGS (16)
  1. PROTECADIN [Concomitant]
     Dosage: THE DIVIDED DOSE FREQUENCY IS UNCERTAIN.
     Route: 048
  2. CINAL [Concomitant]
     Route: 048
  3. ZETIA [Suspect]
     Indication: HYPERCHOLESTEROLAEMIA
     Dosage: DOSE NOT CHANGED
     Route: 048
     Dates: start: 20080714
  4. DASEN [Concomitant]
     Dosage: DOSAGE IS UNCERTAIN DURING A DAY.
     Route: 048
  5. MARTOS [Concomitant]
     Route: 041
  6. ALPRAZOLAM [Concomitant]
     Dosage: DOSAGE IS UNCERTAIN DURING A DAY.
     Route: 048
  7. LENDORMIN [Concomitant]
     Dosage: DOSAGE IS UNCERTAIN DURING A DAY.
     Route: 048
  8. MUCOSTA [Concomitant]
     Dosage: DOSAGE IS UNCERTAIN DURING A DAY.
     Route: 065
  9. MUCODYNE [Concomitant]
     Dosage: DOSAGE IS UNCERTAIN DURING A DAY.
     Route: 048
  10. DOGMATYL [Concomitant]
     Dosage: DOSAGE IS UNCERTAIN DURING A DAY.
     Route: 065
  11. SYMMETREL [Concomitant]
     Dosage: DOSAGE IS UNCERTAIN DURING A DAY.
     Route: 048
  12. LOXONIN [Concomitant]
     Dosage: DOSAGE IS UNCERTAIN DURING A DAY.
     Route: 048
  13. ACTOS [Concomitant]
     Dosage: THE DIVIDED DOSE FREQUENCY IS UNCERTAIN.
     Route: 048
  14. ZETIA [Suspect]
     Indication: HEPATIC STEATOSIS
     Dosage: DOSE NOT CHANGED
     Route: 048
     Dates: start: 20080714
  15. ARTANE [Concomitant]
     Dosage: DOSAGE IS UNCERTAIN DURING A DAY.
     Route: 048
  16. MUCOSOLVAN [Concomitant]
     Dosage: DOSAGE IS UNCERTAIN DURING A DAY.
     Route: 048

REACTIONS (1)
  - BILE DUCT CANCER [None]
